FAERS Safety Report 13582700 (Version 3)
Quarter: 2022Q2

REPORT INFORMATION
  Report Type: Spontaneous
  Country: US (occurrence: US)
  Receive Date: 20170525
  Receipt Date: 20220504
  Transmission Date: 20220720
  Serious: No
  Sender: FDA-Public Use
  Company Number: US-PFIZER INC-2017227440

PATIENT
  Age: 70 Year
  Sex: Female
  Weight: 71.655 kg

DRUGS (4)
  1. EFFEXOR XR [Suspect]
     Active Substance: VENLAFAXINE HYDROCHLORIDE
     Indication: Chronic fatigue syndrome
     Dosage: 150 MG, ONCE A DAY
  2. EFFEXOR XR [Suspect]
     Active Substance: VENLAFAXINE HYDROCHLORIDE
     Indication: Social anxiety disorder
     Dosage: 75 MG, 2X/DAY
  3. EFFEXOR XR [Suspect]
     Active Substance: VENLAFAXINE HYDROCHLORIDE
     Indication: Depression
  4. EFFEXOR XR [Suspect]
     Active Substance: VENLAFAXINE HYDROCHLORIDE
     Indication: Anxiety

REACTIONS (4)
  - Off label use [Unknown]
  - Malaise [Unknown]
  - Dizziness [Unknown]
  - Feeling abnormal [Unknown]
